FAERS Safety Report 13817863 (Version 1)
Quarter: 2017Q3

REPORT INFORMATION
  Report Type: Spontaneous
  Country: US (occurrence: US)
  Receive Date: 20170731
  Receipt Date: 20170731
  Transmission Date: 20171127
  Serious: Yes (Other)
  Sender: FDA-Public Use
  Company Number: US-ROCHE-707291

PATIENT
  Age: 90 Year
  Sex: Female
  Weight: 53.5 kg

DRUGS (18)
  1. SERTRALINE HCL [Concomitant]
     Active Substance: SERTRALINE HYDROCHLORIDE
     Dosage: TOOK ONE TABLET BY MOUTH DAILY
     Route: 048
  2. CARBIDOPA/LEVODOPA [Concomitant]
     Active Substance: CARBIDOPA\LEVODOPA
     Dosage: DRUG NAME: CARBIDOPA/LEVO 25/100 TABLET, TOOK TWO TABLETS BY MOUTH THREE TOMES DAILY
     Route: 048
  3. BONIVA [Concomitant]
     Active Substance: IBANDRONATE SODIUM
     Dosage: ONE TABLET BY MOUTH ONCE A MONTH WITH FULL GLASS OF WATER
     Route: 048
  4. PREDNISONE. [Concomitant]
     Active Substance: PREDNISONE
     Dosage: 3 TABLETS BY MOUTH EVERY OTHER DAY
     Route: 048
  5. BONIVA [Suspect]
     Active Substance: IBANDRONATE SODIUM
     Indication: PRODUCT USED FOR UNKNOWN INDICATION
     Route: 065
  6. FISH OIL [Concomitant]
     Active Substance: FISH OIL
     Dosage: TOOK ONE CAPSULE BY MOUTH DAILY
     Route: 048
  7. OPTIVE LUBRICANT EYE DROPS [Concomitant]
     Dosage: INSTILL ONE DROP TO BOTH EYES, FIVE TIMES A DAY
     Route: 050
  8. SOOTHE [Concomitant]
     Active Substance: BISMUTH SUBSALICYLATE\GLYCERIN\PROPYLENE GLYCOL
     Dosage: INSTILL ONE DROP TO LEFT EYE AT BEDTIME
     Route: 065
  9. BOTANICAL NOS [Concomitant]
     Dosage: DRUG: CITRAL ULTRADENSE, TOOK ONE TABLET BY MOUTH DAILY
     Route: 048
  10. ZINC. [Concomitant]
     Active Substance: ZINC
     Dosage: TOOK ONE TABLET BY MOUTH DAILY
     Route: 048
  11. CALCIUM [Concomitant]
     Active Substance: CALCIUM
     Dosage: TOOK ONE TABLET BY MOUTH DAILY
     Route: 048
  12. SERTRALINE [Concomitant]
     Active Substance: SERTRALINE HYDROCHLORIDE
     Dosage: TOOK ONE TABLET BY MOUTH IN THE EVENING
     Route: 048
  13. MAGNESIUM [Concomitant]
     Active Substance: MAGNESIUM
     Dosage: TOOK ONE TABLET BY MOUTH DAILY
     Route: 048
  14. RECLAST [Suspect]
     Active Substance: ZOLEDRONIC ACID
     Indication: OSTEOPOROSIS
     Route: 042
     Dates: start: 20100518, end: 20100817
  15. AMLODIPINE BESYLATE. [Concomitant]
     Active Substance: AMLODIPINE BESYLATE
     Dosage: TOOK ONE TABLET BY MOUTH DAILY
     Route: 048
  16. CITRACAL [Concomitant]
     Active Substance: CALCIUM CITRATE
     Dosage: DRUG: CITRACAL UCIRADENSE.?TOOK ONE TABLET BY MOUTH DAY
     Route: 048
  17. GLUCOSAMINE SULFATE [Concomitant]
     Active Substance: GLUCOSAMINE SULFATE
     Dosage: TOOK ONE CAPSULE BY MOUTH DAILY
     Route: 048
  18. CARBIDOPA/LEVODOPA [Concomitant]
     Active Substance: CARBIDOPA\LEVODOPA
     Dosage: TOOK ONE TALBET BY MOUTH TWO TIMES PER DAY.
     Route: 048

REACTIONS (1)
  - Vein disorder [Recovering/Resolving]

NARRATIVE: CASE EVENT DATE: 20100518
